FAERS Safety Report 20195985 (Version 1)
Quarter: 2021Q4

REPORT INFORMATION
  Report Type: Spontaneous
  Country: CN (occurrence: CN)
  Receive Date: 20211216
  Receipt Date: 20211216
  Transmission Date: 20220303
  Serious: Yes (Hospitalization, Other)
  Sender: FDA-Public Use
  Company Number: CN-SA-SAC20211214000466

PATIENT
  Age: 75 Year
  Sex: Male
  Weight: 52 kg

DRUGS (1)
  1. ZOLPIDEM TARTRATE [Suspect]
     Active Substance: ZOLPIDEM TARTRATE
     Indication: Gastric mucosal lesion
     Dosage: 10 MG, QD
     Route: 048
     Dates: start: 20211129, end: 20211130

REACTIONS (2)
  - Dementia [Recovering/Resolving]
  - Dysphoria [Recovering/Resolving]

NARRATIVE: CASE EVENT DATE: 20211129
